FAERS Safety Report 14998947 (Version 2)
Quarter: 2018Q2

REPORT INFORMATION
  Report Type: Spontaneous
  Country: AU (occurrence: AU)
  Receive Date: 20180612
  Receipt Date: 20180612
  Transmission Date: 20180711
  Serious: Yes (Other)
  Sender: FDA-Public Use
  Company Number: AU-TEVA-2018-AU-905664

PATIENT
  Sex: Female

DRUGS (1)
  1. ARIPIPRAZOLE. [Suspect]
     Active Substance: ARIPIPRAZOLE
     Route: 065

REACTIONS (3)
  - Treatment noncompliance [Unknown]
  - Substance abuse [Unknown]
  - Condition aggravated [Unknown]
